FAERS Safety Report 18518591 (Version 9)
Quarter: 2022Q1

REPORT INFORMATION
  Report Type: Spontaneous
  Country: US (occurrence: US)
  Receive Date: 20201118
  Receipt Date: 20220222
  Transmission Date: 20220423
  Serious: Yes (Other)
  Sender: FDA-Public Use
  Company Number: US-PFIZER INC-2020454236

PATIENT
  Age: 62 Year
  Sex: Female

DRUGS (1)
  1. XELJANZ XR [Suspect]
     Active Substance: TOFACITINIB CITRATE
     Dosage: 11 MG

REACTIONS (10)
  - Diabetes mellitus [Unknown]
  - Arthralgia [Not Recovered/Not Resolved]
  - Joint noise [Recovered/Resolved]
  - Dry mouth [Unknown]
  - Pain in extremity [Unknown]
  - Bone pain [Unknown]
  - Sensitivity to weather change [Unknown]
  - Sensation of foreign body [Unknown]
  - Sinusitis [Unknown]
  - Illness [Unknown]
